FAERS Safety Report 7369671-4 (Version None)
Quarter: 2011Q1

REPORT INFORMATION
  Report Type: 
  Country: None (occurrence: None)
  Receive Date: 20110323
  Receipt Date: 20110316
  Transmission Date: 20110831
  Serious: Yes (Other)
  Sender: FDA-Public Use
  Company Number: DE-BRISTOL-MYERS SQUIBB COMPANY-15539364

PATIENT
  Age: 60 Year
  Sex: Female

DRUGS (6)
  1. REYATAZ [Suspect]
     Dates: start: 20100401
  2. TRUVADA [Suspect]
     Indication: HIV INFECTION
  3. AZITHROMYCIN [Concomitant]
     Indication: MYCOBACTERIUM AVIUM COMPLEX INFECTION
  4. RITONAVIR [Suspect]
     Indication: HIV INFECTION
  5. ETHAMBUTOL HYDROCHLORIDE [Concomitant]
     Indication: MYCOBACTERIUM AVIUM COMPLEX INFECTION
  6. RIFABUTIN [Concomitant]
     Indication: MYCOBACTERIUM AVIUM COMPLEX INFECTION

REACTIONS (2)
  - PLASMABLASTIC LYMPHOMA [None]
  - THERAPEUTIC RESPONSE DECREASED [None]
